FAERS Safety Report 9127740 (Version 1)
Quarter: 2013Q1

REPORT INFORMATION
  Report Type: Spontaneous
  Country: US (occurrence: US)
  Receive Date: 20130228
  Receipt Date: 20130228
  Transmission Date: 20140127
  Serious: No
  Sender: FDA-Public Use
  Company Number: US-GLAXOSMITHKLINE-A0997522A

PATIENT
  Age: 87 Year
  Sex: Female

DRUGS (10)
  1. LAMICTAL [Suspect]
     Indication: PARTIAL SEIZURES
     Dosage: 25MG THREE TIMES PER DAY
     Route: 048
     Dates: start: 20120102
  2. BOTOX [Concomitant]
  3. BUSPIRONE [Concomitant]
  4. KLONOPIN [Concomitant]
  5. EVISTA [Concomitant]
  6. RANITIDINE [Concomitant]
  7. PROPANOL [Concomitant]
  8. NEXIUM [Concomitant]
  9. FOLIC ACID [Concomitant]
  10. AMITRIPTYLINE [Concomitant]
     Dosage: 10MG PER DAY

REACTIONS (3)
  - Dry mouth [Not Recovered/Not Resolved]
  - Oral pain [Not Recovered/Not Resolved]
  - Oral pain [Not Recovered/Not Resolved]
